FAERS Safety Report 8502246-X (Version None)
Quarter: 2012Q3

REPORT INFORMATION
  Report Type: 
  Country: None (occurrence: None)
  Receive Date: 20120711
  Receipt Date: 20120627
  Transmission Date: 20120928
  Serious: Yes (Other)
  Sender: FDA-Public Use
  Company Number: DE-RANBAXY-2012RR-57640

PATIENT
  Age: 9 Week
  Sex: Male

DRUGS (1)
  1. FLUCONAZOLE [Suspect]
     Dosage: UNK
     Route: 063

REACTIONS (3)
  - TREMOR [None]
  - EXPOSURE DURING BREAST FEEDING [None]
  - MUSCULOSKELETAL STIFFNESS [None]
